FAERS Safety Report 7533876-X (Version None)
Quarter: 2011Q2

REPORT INFORMATION
  Report Type: 
  Country: None (occurrence: None)
  Receive Date: 20110608
  Receipt Date: 20060603
  Transmission Date: 20111010
  Serious: Yes (Hospitalization)
  Sender: FDA-Public Use
  Company Number: PHEH2006US07295

PATIENT
  Sex: Male

DRUGS (2)
  1. EXJADE [Suspect]
     Indication: BLOOD IRON INCREASED
     Dosage: 1000 MG, QD
     Route: 048
     Dates: start: 20060209
  2. BLOOD AND RELATED PRODUCTS [Concomitant]
     Dosage: UNK

REACTIONS (1)
  - PROSTATIC HAEMORRHAGE [None]
